FAERS Safety Report 17645160 (Version 1)
Quarter: 2020Q2

REPORT INFORMATION
  Report Type: Spontaneous
  Country: US (occurrence: US)
  Receive Date: 20200408
  Receipt Date: 20200408
  Transmission Date: 20200713
  Serious: Yes (Hospitalization, Disabling, Other)
  Sender: FDA-Public Use
  Company Number: None

PATIENT
  Age: 82 Year
  Sex: Male
  Weight: 83.46 kg

DRUGS (2)
  1. NOT APPLICABLE [Concomitant]
     Active Substance: HYOSCYAMINE SULFATE
  2. GAVILYTE - C [Suspect]
     Active Substance: POLYETHYLENE GLYCOL 3350\POTASSIUM CHLORIDE\SODIUM BICARBONATE\SODIUM CHLORIDE\SODIUM SULFATE ANHYDROUS
     Indication: CONSTIPATION
     Dates: start: 20200322, end: 20200323

REACTIONS (5)
  - Adverse reaction [None]
  - Arthralgia [None]
  - Myalgia [None]
  - Back pain [None]
  - Ataxia [None]

NARRATIVE: CASE EVENT DATE: 20200322
